FAERS Safety Report 10641160 (Version 1)
Quarter: 2014Q4

REPORT INFORMATION
  Report Type: Spontaneous
  Country: ES (occurrence: ES)
  Receive Date: 20141209
  Receipt Date: 20141209
  Transmission Date: 20150529
  Serious: Yes (Other)
  Sender: FDA-Public Use
  Company Number: ES-ROXANE LABORATORIES, INC.-2014-RO-01818RO

PATIENT
  Sex: Female

DRUGS (1)
  1. DEXAMETHASONE. [Suspect]
     Active Substance: DEXAMETHASONE
     Indication: PROPHYLAXIS
     Route: 065

REACTIONS (4)
  - Gestational diabetes [Unknown]
  - Premature labour [Unknown]
  - Acne [Unknown]
  - Weight increased [Unknown]
